FAERS Safety Report 11677665 (Version 2)
Quarter: 2015Q4

REPORT INFORMATION
  Report Type: Spontaneous
  Country: JP (occurrence: JP)
  Receive Date: 20151028
  Receipt Date: 20151214
  Transmission Date: 20160304
  Serious: Yes (Death, Hospitalization, Other)
  Sender: FDA-Public Use
  Company Number: JP-TAKEDA-2015MPI007078

PATIENT

DRUGS (7)
  1. VELCADE [Suspect]
     Active Substance: BORTEZOMIB
     Dosage: 2 MG, QD
     Route: 058
     Dates: start: 20150515, end: 20150515
  2. VELCADE [Suspect]
     Active Substance: BORTEZOMIB
     Dosage: 2 MG, QD
     Route: 058
     Dates: start: 20150605, end: 20150605
  3. VELCADE [Suspect]
     Active Substance: BORTEZOMIB
     Indication: PLASMA CELL MYELOMA
     Dosage: 2 MG, QD
     Route: 058
     Dates: start: 20150407, end: 20150407
  4. VELCADE [Suspect]
     Active Substance: BORTEZOMIB
     Dosage: 2 MG, QD
     Route: 058
     Dates: start: 20150417, end: 20150417
  5. DEXAMETHASONE. [Concomitant]
     Active Substance: DEXAMETHASONE
     Indication: PLASMA CELL MYELOMA
     Dosage: UNK
     Route: 065
  6. VELCADE [Suspect]
     Active Substance: BORTEZOMIB
     Dosage: 2 MG, QD
     Route: 058
     Dates: start: 20150410, end: 20150410
  7. VELCADE [Suspect]
     Active Substance: BORTEZOMIB
     Dosage: 2 MG, QD
     Route: 058
     Dates: start: 20150508, end: 20150508

REACTIONS (7)
  - Bone marrow failure [Unknown]
  - Decreased appetite [Unknown]
  - Diarrhoea [Unknown]
  - Blood potassium decreased [Unknown]
  - Loss of consciousness [Recovered/Resolved]
  - Sudden death [Fatal]
  - Arrhythmia [Fatal]

NARRATIVE: CASE EVENT DATE: 2015
